FAERS Safety Report 24015723 (Version 1)
Quarter: 2024Q2

REPORT INFORMATION
  Report Type: Spontaneous
  Country: US (occurrence: US)
  Receive Date: 20240626
  Receipt Date: 20240626
  Transmission Date: 20240715
  Serious: No
  Sender: FDA-Public Use
  Company Number: US-FreseniusKabi-FK202409775

PATIENT

DRUGS (1)
  1. POLOCAINE [Suspect]
     Active Substance: MEPIVACAINE HYDROCHLORIDE
     Indication: Spinal anaesthesia
     Dosage: FORM OF ADMIN: INJECTION?ROUTE OF ADMINISTRATION: SPINAL ?DOSE AND FRQUENCY: ASKED BUT UKNOWN
     Dates: start: 20240501, end: 20240501

REACTIONS (2)
  - Therapeutic product effect decreased [Unknown]
  - Off label use [Unknown]

NARRATIVE: CASE EVENT DATE: 20240501
